FAERS Safety Report 14235529 (Version 1)
Quarter: 2017Q4

REPORT INFORMATION
  Report Type: Spontaneous
  Country: PH (occurrence: PH)
  Receive Date: 20171129
  Receipt Date: 20171129
  Transmission Date: 20180321
  Serious: Yes (Hospitalization, Other)
  Sender: FDA-Public Use
  Company Number: PH-ASTRAZENECA-2017SF19147

PATIENT
  Age: 55 Year
  Sex: Female
  Weight: 40.8 kg

DRUGS (3)
  1. FASLODEX [Suspect]
     Active Substance: FULVESTRANT
     Indication: BREAST CANCER METASTATIC
     Dosage: ONE 250 MG INJECTION TO EACH BUTTOCK UNKNOWN
     Route: 030
     Dates: start: 20171104
  2. FASLODEX [Suspect]
     Active Substance: FULVESTRANT
     Indication: BREAST CANCER METASTATIC
     Dosage: DOSE UNKNOWN UNKNOWN
     Route: 030
     Dates: start: 201707
  3. ARIMIDEX [Suspect]
     Active Substance: ANASTROZOLE
     Indication: BREAST CANCER
     Dosage: UNKNOWN DOSE
     Route: 048
     Dates: start: 2014

REACTIONS (19)
  - Pain [Unknown]
  - Breast cancer recurrent [Unknown]
  - Metastasis [Unknown]
  - Hepatic cancer [Unknown]
  - Asthenia [Unknown]
  - Metastases to lung [Unknown]
  - Intestinal obstruction [Not Recovered/Not Resolved]
  - Drug ineffective [Unknown]
  - Gastric neoplasm [Not Recovered/Not Resolved]
  - Ascites [Unknown]
  - Solar lentigo [Not Recovered/Not Resolved]
  - General physical health deterioration [Unknown]
  - Off label use [Unknown]
  - Electrolyte imbalance [Unknown]
  - Metastases to bone [Unknown]
  - Cancer in remission [Unknown]
  - Movement disorder [Unknown]
  - Metastases to central nervous system [Unknown]
  - Vomiting [Unknown]

NARRATIVE: CASE EVENT DATE: 2016
